FAERS Safety Report 9714828 (Version 1)
Quarter: 2013Q4

REPORT INFORMATION
  Report Type: Spontaneous
  Country: BR (occurrence: BR)
  Receive Date: 20131126
  Receipt Date: 20131126
  Transmission Date: 20140711
  Serious: Yes (Death, Other)
  Sender: FDA-Public Use
  Company Number: BR-AMGEN-BRASP2013082883

PATIENT
  Age: 53 Year
  Sex: Female
  Weight: 56 kg

DRUGS (4)
  1. ENBREL [Suspect]
     Indication: RHEUMATOID ARTHRITIS
     Dosage: 25 MG, 2X/WEEK
     Route: 058
     Dates: start: 200807
  2. ALLOPURINOL [Concomitant]
     Dosage: UNK (STRENGTH 40 MG)
  3. PANTOPRAZOLE [Concomitant]
     Indication: ABDOMINAL PAIN UPPER
     Dosage: 40 MG, QD (TWO TABLETS OF 20 MG DAILY)
     Dates: start: 2003
  4. METAMIZOLE SODIUM [Concomitant]
     Dosage: UNK

REACTIONS (4)
  - Death [Fatal]
  - Arthropathy [Unknown]
  - Patient-device incompatibility [Unknown]
  - Post procedural infection [Unknown]
